FAERS Safety Report 20670959 (Version 2)
Quarter: 2022Q3

REPORT INFORMATION
  Report Type: Spontaneous
  Country: US (occurrence: US)
  Receive Date: 20220404
  Receipt Date: 20220714
  Transmission Date: 20221027
  Serious: No
  Sender: FDA-Public Use
  Company Number: US-GW PHARMA-202203USGW01671

PATIENT
  Age: 21 Year
  Sex: Male

DRUGS (1)
  1. EPIDIOLEX [Suspect]
     Active Substance: CANNABIDIOL
     Indication: Lennox-Gastaut syndrome
     Dosage: 450 MG, FREQUENCY NOT REPORTED, DOSE INCREASED
     Route: 048
     Dates: start: 202203

REACTIONS (4)
  - Oropharyngeal discomfort [Unknown]
  - Dry throat [Unknown]
  - Nausea [Unknown]
  - Diarrhoea [Unknown]

NARRATIVE: CASE EVENT DATE: 20220301
